FAERS Safety Report 5514027-X (Version None)
Quarter: 2007Q4

REPORT INFORMATION
  Report Type: 
  Country: None (occurrence: None)
  Receive Date: 20071109
  Receipt Date: 20071109
  Transmission Date: 20080405
  Serious: Yes (Life-Threatening, Hospitalization)
  Sender: FDA-Public Use
  Company Number: None

PATIENT
  Age: 77 Year
  Sex: Female
  Weight: 93.4 kg

DRUGS (10)
  1. LISINOPRIL [Suspect]
     Indication: HYPERTENSION
     Dosage: 40MG DAILY PO
     Route: 048
  2. AMLODIPINE MALEATE/ BENAZEPRIL HYDROCHLORIDE [Suspect]
     Indication: HYPERTENSION
     Dosage: 5/10 DAILY PO
     Route: 048
  3. CARVEDILOL [Concomitant]
  4. ASPIRIN [Concomitant]
  5. CLOPIDOGREL [Concomitant]
  6. AMLODIPINE [Concomitant]
  7. EZETIMIBE/SIMVASTATIN [Concomitant]
  8. METFORMIN HYDROCHLORIDE [Concomitant]
  9. NITROGLYCERIN [Concomitant]
  10. ROSIGLITAZONE [Concomitant]

REACTIONS (3)
  - ANGINA UNSTABLE [None]
  - ANGIOEDEMA [None]
  - ARTERIOSPASM CORONARY [None]
